FAERS Safety Report 14181152 (Version 1)
Quarter: 2017Q4

REPORT INFORMATION
  Report Type: Spontaneous
  Country: US (occurrence: US)
  Receive Date: 20171112
  Receipt Date: 20171112
  Transmission Date: 20180321
  Serious: Yes (Other)
  Sender: FDA-Public Use
  Company Number: US-TEVA-825444ACC

PATIENT
  Sex: Female

DRUGS (1)
  1. AZITHROMYCIN ANHYDROUS. [Suspect]
     Active Substance: AZITHROMYCIN ANHYDROUS
     Dosage: 65-150

REACTIONS (5)
  - Extra dose administered [Unknown]
  - Muscle spasms [Unknown]
  - Vertigo [Unknown]
  - Diarrhoea haemorrhagic [Unknown]
  - Nausea [Unknown]
